FAERS Safety Report 16082475 (Version 1)
Quarter: 2019Q1

REPORT INFORMATION
  Report Type: Spontaneous
  Country: US (occurrence: US)
  Receive Date: 20190318
  Receipt Date: 20190318
  Transmission Date: 20190418
  Serious: Yes (Other)
  Sender: FDA-Public Use
  Company Number: US-CIPLA LTD.-2019US01388

PATIENT

DRUGS (16)
  1. ACETAMINOPHEN. [Suspect]
     Active Substance: ACETAMINOPHEN
     Indication: NEUROPATHY PERIPHERAL
     Dosage: UNK, PRN
     Route: 048
  2. GABAPENTIN. [Suspect]
     Active Substance: GABAPENTIN
     Indication: NEUROPATHY PERIPHERAL
     Dosage: 300 MILLIGRAM, UNK
     Route: 048
  3. DULOXETINE. [Suspect]
     Active Substance: DULOXETINE
     Indication: NEUROPATHY PERIPHERAL
     Dosage: 30 MILLIGRAM, UNK
     Route: 048
  4. VITAMIN B12 [Suspect]
     Active Substance: CYANOCOBALAMIN
     Indication: NEUROPATHY PERIPHERAL
     Dosage: 1000 MICROGRAM, QD
     Route: 048
  5. FISH OIL [Suspect]
     Active Substance: FISH OIL
     Indication: NEUROPATHY PERIPHERAL
     Dosage: 1000 MILLIGRAM, QD
     Route: 048
  6. ALPHA LIPOIC ACID [Suspect]
     Active Substance: .ALPHA.-LIPOIC ACID
     Indication: NEUROPATHY PERIPHERAL
     Dosage: 600 MILLIGRAM, QD
     Route: 048
  7. BACLOFEN. [Suspect]
     Active Substance: BACLOFEN
     Indication: NEUROPATHY PERIPHERAL
     Dosage: 10 MILLIGRAM, TID
     Route: 048
  8. OXCARBAZEPINE. [Suspect]
     Active Substance: OXCARBAZEPINE
     Indication: NEUROPATHY PERIPHERAL
     Dosage: UNK
     Route: 048
  9. TRAMADOL. [Suspect]
     Active Substance: TRAMADOL
     Indication: NEUROPATHY PERIPHERAL
     Dosage: 50 MILLIGRAM, PRN (BID)
     Route: 048
  10. PREGABALIN. [Suspect]
     Active Substance: PREGABALIN
     Dosage: 300 MILLIGRAM, BID (TITRATED)
     Route: 048
  11. DULOXETINE. [Suspect]
     Active Substance: DULOXETINE
     Dosage: 120 MILLIGRAM, QD
     Route: 048
  12. OXCARBAZEPINE. [Suspect]
     Active Substance: OXCARBAZEPINE
     Dosage: 600 MILLIGRAM, BID (TITRATED)
     Route: 048
  13. LIDOCAINE. [Suspect]
     Active Substance: LIDOCAINE
     Indication: NEUROPATHY PERIPHERAL
     Dosage: UNK, PRN, CREAM
     Route: 061
  14. GABAPENTIN. [Suspect]
     Active Substance: GABAPENTIN
     Dosage: 600 MILLIGRAM, TID (TITRATED)
     Route: 048
  15. PREGABALIN. [Suspect]
     Active Substance: PREGABALIN
     Indication: NEUROPATHY PERIPHERAL
     Dosage: 150 MILLIGRAM, BID
     Route: 048
  16. CAPSAICIN. [Suspect]
     Active Substance: CAPSAICIN
     Indication: NEUROPATHY PERIPHERAL
     Dosage: UNK, PRN, CREAM
     Route: 061

REACTIONS (1)
  - Drug ineffective [Unknown]
